FAERS Safety Report 8612644-1 (Version None)
Quarter: 2012Q3

REPORT INFORMATION
  Report Type: 
  Country: None (occurrence: None)
  Receive Date: 20120822
  Receipt Date: 20110919
  Transmission Date: 20120928
  Serious: No
  Sender: FDA-Public Use
  Company Number: US-ASTRAZENECA-2011SE56458

PATIENT
  Sex: Male

DRUGS (3)
  1. PREDNISONE TAB [Concomitant]
  2. SYMBICORT [Suspect]
     Dosage: 80/4.5 MCG
     Route: 055
  3. FLUTICASONE PROPIONATE/SALMETEROL [Concomitant]

REACTIONS (3)
  - WHEEZING [None]
  - CHEST DISCOMFORT [None]
  - DRUG DOSE OMISSION [None]
